FAERS Safety Report 4737835-1 (Version None)
Quarter: 2005Q3

REPORT INFORMATION
  Report Type: 
  Country: None (occurrence: None)
  Receive Date: 20050803
  Receipt Date: 20050727
  Transmission Date: 20060218
  Serious: Yes (Hospitalization)
  Sender: FDA-Public Use
  Company Number: C05-T-125

PATIENT
  Age: 48 Year
  Sex: Female

DRUGS (7)
  1. PROMETHAZINE HCL [Suspect]
     Indication: NAUSEA
     Dates: start: 20040701, end: 20050620
  2. PROMETHAZINE HCL [Suspect]
     Indication: VOMITING
     Dates: start: 20040701, end: 20050620
  3. DOXEPIN HCL [Concomitant]
  4. LORAZEPAM [Concomitant]
  5. SEREVENT [Concomitant]
  6. ALBUTEROL [Concomitant]
  7. PERCOCET [Concomitant]

REACTIONS (14)
  - ABDOMINAL PAIN [None]
  - ASPARTATE AMINOTRANSFERASE INCREASED [None]
  - BLOOD POTASSIUM DECREASED [None]
  - BLOOD PRESSURE ABNORMAL [None]
  - BLOOD URINE PRESENT [None]
  - DEHYDRATION [None]
  - GASTRIC DISORDER [None]
  - NAUSEA [None]
  - PANCREATITIS [None]
  - PHARMACEUTICAL PRODUCT COMPLAINT [None]
  - PROTEIN URINE PRESENT [None]
  - RESPIRATORY RATE INCREASED [None]
  - STRESS [None]
  - VOMITING [None]
